FAERS Safety Report 6381736-2 (Version None)
Quarter: 2009Q3

REPORT INFORMATION
  Report Type: 
  Country: None (occurrence: None)
  Receive Date: 20090930
  Receipt Date: 20090921
  Transmission Date: 20100115
  Serious: Yes (Hospitalization)
  Sender: FDA-Public Use
  Company Number: CHPA2009US18664

PATIENT
  Sex: Female

DRUGS (3)
  1. DICLOFENAC SODIUM [Suspect]
     Indication: TENDONITIS
     Dosage: UNK, ONCE DAILY
     Route: 061
     Dates: start: 20090701
  2. DICLOFENAC SODIUM [Suspect]
     Dosage: 1 DF, ONCE/SINGLE
     Route: 048
     Dates: start: 20090905
  3. HYDROCODONE [Concomitant]
     Indication: ARTHRALGIA
     Dosage: UNK, PRN
     Dates: start: 20080301

REACTIONS (5)
  - DYSPNOEA [None]
  - FLUID RETENTION [None]
  - HYPERSENSITIVITY [None]
  - MYOCARDIAL INFARCTION [None]
  - STENT PLACEMENT [None]
